FAERS Safety Report 18053963 (Version 1)
Quarter: 2020Q3

REPORT INFORMATION
  Report Type: Spontaneous
  Country: US (occurrence: US)
  Receive Date: 20200722
  Receipt Date: 20200722
  Transmission Date: 20201103
  Serious: No
  Sender: FDA-Public Use
  Company Number: US-PFIZER INC-2020277201

PATIENT
  Age: 55 Year
  Sex: Female
  Weight: 63.5 kg

DRUGS (2)
  1. DUAVEE [Suspect]
     Active Substance: BAZEDOXIFENE ACETATE\ESTROGENS, CONJUGATED
     Indication: MENOPAUSE
  2. DUAVEE [Suspect]
     Active Substance: BAZEDOXIFENE ACETATE\ESTROGENS, CONJUGATED
     Indication: HOT FLUSH
     Dosage: 1 DF, 1X/DAY (IN THE EVENING)
     Route: 048
     Dates: start: 2019, end: 202007

REACTIONS (10)
  - Irritability [Not Recovered/Not Resolved]
  - Adnexa uteri pain [Unknown]
  - Pelvic discomfort [Unknown]
  - Uterine pain [Unknown]
  - Feeling abnormal [Unknown]
  - Therapeutic response unexpected [Unknown]
  - Recalled product administered [Unknown]
  - Muscle spasms [Unknown]
  - Abdominal distension [Unknown]
  - Sleep disorder [Unknown]
